FAERS Safety Report 25708447 (Version 2)
Quarter: 2025Q4

REPORT INFORMATION
  Report Type: Spontaneous
  Country: BR (occurrence: BR)
  Receive Date: 20250821
  Receipt Date: 20251013
  Transmission Date: 20260117
  Serious: Yes (Hospitalization, Other)
  Sender: SANDOZ
  Company Number: BR-002147023-NVSC2023BR103361

PATIENT
  Sex: Female

DRUGS (8)
  1. ANASTROZOLE [Suspect]
     Active Substance: ANASTROZOLE
     Indication: Product used for unknown indication
     Dosage: UNK
     Route: 065
  2. CAPECITABINE [Suspect]
     Active Substance: CAPECITABINE
     Indication: Product used for unknown indication
     Dosage: UNK
     Route: 065
  3. FULVESTRANT [Suspect]
     Active Substance: FULVESTRANT
     Indication: Product used for unknown indication
     Dosage: UNK
     Route: 065
  4. KISQALI [Suspect]
     Active Substance: RIBOCICLIB SUCCINATE
     Indication: Breast cancer female
     Dosage: UNK
     Route: 065
     Dates: start: 20230405
  5. KISQALI [Suspect]
     Active Substance: RIBOCICLIB SUCCINATE
     Dosage: UNK
     Route: 065
  6. KISQALI [Suspect]
     Active Substance: RIBOCICLIB SUCCINATE
     Dosage: UNK
     Route: 065
  7. KISQALI [Suspect]
     Active Substance: RIBOCICLIB SUCCINATE
     Dosage: UNK
     Route: 065
  8. KISQALI [Suspect]
     Active Substance: RIBOCICLIB SUCCINATE
     Dosage: UNK
     Route: 065
     Dates: start: 20240509, end: 20240521

REACTIONS (39)
  - Syncope [Recovered/Resolved]
  - Ill-defined disorder [Recovered/Resolved]
  - Breast cancer [Unknown]
  - Malignant neoplasm progression [Unknown]
  - Metastases to bone [Unknown]
  - Hepatic infection [Unknown]
  - Paralysis [Unknown]
  - Breast injury [Unknown]
  - Aphthous ulcer [Unknown]
  - Feeding disorder [Not Recovered/Not Resolved]
  - Decreased immune responsiveness [Unknown]
  - Peripheral swelling [Recovering/Resolving]
  - Furuncle [Unknown]
  - Discharge [Unknown]
  - Erythema [Unknown]
  - Breast pain [Not Recovered/Not Resolved]
  - Musculoskeletal stiffness [Unknown]
  - Dengue fever [Recovered/Resolved]
  - Pain [Recovering/Resolving]
  - Liver function test abnormal [Recovered/Resolved]
  - Skin exfoliation [Recovering/Resolving]
  - Burning sensation [Recovering/Resolving]
  - Chills [Unknown]
  - Sluggishness [Unknown]
  - Malaise [Unknown]
  - Breast swelling [Not Recovered/Not Resolved]
  - Cardiac disorder [Unknown]
  - Dry skin [Unknown]
  - Onychomadesis [Unknown]
  - Onychomalacia [Unknown]
  - Liver disorder [Recovered/Resolved]
  - Dengue fever [Recovered/Resolved]
  - Breast mass [Not Recovered/Not Resolved]
  - Pyrexia [Recovered/Resolved]
  - Pain in extremity [Recovering/Resolving]
  - Vomiting [Unknown]
  - Nausea [Unknown]
  - Arthralgia [Unknown]
  - Asthenia [Recovered/Resolved]

NARRATIVE: CASE EVENT DATE: 20230101
